FAERS Safety Report 19322129 (Version 1)
Quarter: 2021Q2

REPORT INFORMATION
  Report Type: Spontaneous
  Country: US (occurrence: US)
  Receive Date: 20210528
  Receipt Date: 20210528
  Transmission Date: 20210717
  Serious: No
  Sender: FDA-Public Use
  Company Number: US-ELI_LILLY_AND_COMPANY-US202105012774

PATIENT
  Sex: Female

DRUGS (1)
  1. FORTEO [Suspect]
     Active Substance: TERIPARATIDE
     Indication: PRODUCT USED FOR UNKNOWN INDICATION
     Dosage: UNK UNK, UNKNOWN
     Route: 065
     Dates: start: 20210405

REACTIONS (6)
  - Musculoskeletal stiffness [Unknown]
  - Visual impairment [Unknown]
  - Incorrect product administration duration [Unknown]
  - Nervous system disorder [Unknown]
  - Product dose omission issue [Unknown]
  - Hypoaesthesia [Unknown]
